FAERS Safety Report 10494696 (Version 1)
Quarter: 2014Q4

REPORT INFORMATION
  Report Type: Spontaneous
  Country: US (occurrence: None)
  Receive Date: 20141001
  Receipt Date: 20141001
  Transmission Date: 20150528
  Serious: Yes (Other)
  Sender: FDA-Public Use
  Company Number: CIO14065190

PATIENT
  Sex: Female

DRUGS (1)
  1. CREST PRO-HEALTH CLINICAL GUM PROTECTION [Suspect]
     Active Substance: STANNOUS FLUORIDE
     Indication: GINGIVITIS
     Dosage: INTRAORAL

REACTIONS (2)
  - Gingival injury [None]
  - Tooth extraction [None]
